FAERS Safety Report 8842671 (Version 1)
Quarter: 2012Q4

REPORT INFORMATION
  Report Type: 
  Country: US (occurrence: US)
  Receive Date: 20121016
  Receipt Date: 20121016
  Transmission Date: 20130627
  Serious: Yes (Other)
  Sender: FDA-Public Use
  Company Number: US-ENDO PHARMACEUTICALS INC.-TRIP20120005

PATIENT
  Age: 19 Year
  Sex: Female
  Weight: 57.2 kg

DRUGS (1)
  1. TRI-PREVIFEM TABLETS [Suspect]
     Indication: CONTRACEPTION
     Dosage: 1 TABLET
     Route: 048
     Dates: start: 201108, end: 201112

REACTIONS (17)
  - Postural orthostatic tachycardia syndrome [Recovered/Resolved]
  - Condition aggravated [Recovered/Resolved]
  - Gestational hypertension [Recovered/Resolved]
  - Beta haemolytic streptococcal infection [Unknown]
  - Protein deficiency anaemia [Unknown]
  - Thrombocytopenia [Unknown]
  - Vaginal haemorrhage [Unknown]
  - Dehydration [Unknown]
  - Threatened labour [Recovered/Resolved]
  - Vomiting [Unknown]
  - Adjustment disorder with anxiety [Unknown]
  - Folliculitis [Unknown]
  - Smear cervix abnormal [Unknown]
  - Urinary tract infection [Unknown]
  - Fungal infection [Unknown]
  - Pregnancy on oral contraceptive [Recovered/Resolved]
  - Drug ineffective [Recovered/Resolved]
